FAERS Safety Report 9335880 (Version 2)
Quarter: 2013Q4

REPORT INFORMATION
  Report Type: Spontaneous
  Country: US (occurrence: US)
  Receive Date: 20130606
  Receipt Date: 20131008
  Transmission Date: 20140711
  Serious: No
  Sender: FDA-Public Use
  Company Number: US-AMGEN-USASP2013016792

PATIENT
  Age: 57 Year
  Sex: Female
  Weight: 51.43 kg

DRUGS (5)
  1. PROLIA [Suspect]
     Indication: OSTEOPENIA
     Dosage: 60 MG/1 ML, Q6MO
     Route: 058
     Dates: start: 20121102
  2. PROLIA [Suspect]
     Indication: OSTEOPOROSIS POSTMENOPAUSAL
  3. CALCIUM [Concomitant]
  4. VITAMIN D                          /00107901/ [Concomitant]
  5. RESTASIS [Concomitant]

REACTIONS (5)
  - Feeling abnormal [Unknown]
  - Musculoskeletal stiffness [Not Recovered/Not Resolved]
  - Fatigue [Not Recovered/Not Resolved]
  - Myalgia [Not Recovered/Not Resolved]
  - Pain in extremity [Not Recovered/Not Resolved]
